FAERS Safety Report 9692965 (Version 1)
Quarter: 2013Q4

REPORT INFORMATION
  Report Type: Spontaneous
  Country: GB (occurrence: GB)
  Receive Date: 20131118
  Receipt Date: 20131118
  Transmission Date: 20140711
  Serious: Yes (Other)
  Sender: FDA-Public Use
  Company Number: GB-DRREDDYS-GER/UKI/13/0035615

PATIENT
  Age: 22 Month
  Sex: Female
  Weight: 13.14 kg

DRUGS (3)
  1. MONTELUKAST [Suspect]
     Indication: ASTHMA
     Route: 048
     Dates: start: 201303, end: 201304
  2. CLENIL MODULITE [Concomitant]
     Indication: PRODUCT USED FOR UNKNOWN INDICATION
  3. SALBUTAMOL [Concomitant]
     Indication: PRODUCT USED FOR UNKNOWN INDICATION

REACTIONS (6)
  - Crying [Unknown]
  - Anger [Unknown]
  - Fear [Recovered/Resolved]
  - Screaming [Unknown]
  - Somnambulism [Recovered/Resolved]
  - Aggression [Recovered/Resolved with Sequelae]
